FAERS Safety Report 5786748-5 (Version None)
Quarter: 2008Q2

REPORT INFORMATION
  Report Type: 
  Country: None (occurrence: None)
  Receive Date: 20080618
  Receipt Date: 20080609
  Transmission Date: 20081010
  Serious: Yes (Hospitalization)
  Sender: FDA-Public Use
  Company Number: 8033186

PATIENT
  Age: 73 Year
  Sex: Male

DRUGS (14)
  1. PREDNISOLONE [Suspect]
     Dosage: 20 MG PO
     Route: 048
     Dates: end: 20070422
  2. ATORVASTATIN CALCIUM [Suspect]
     Dosage: 20 MG PO
     Route: 048
  3. RIFATER [Suspect]
     Indication: TUBERCULOSIS
     Dosage: 1 DF 6/D PO
     Route: 048
     Dates: end: 20070422
  4. AMIODARONE HCL [Concomitant]
  5. ASPIRIN [Concomitant]
  6. ATENOLOL [Concomitant]
  7. CARBAMAZEPINE [Concomitant]
  8. DIPYRIDAMOLE [Concomitant]
  9. METOCLOPRAMIDE [Concomitant]
  10. NICORANDIL [Concomitant]
  11. PERINOPRIL [Concomitant]
  12. PYRIDOXINE [Concomitant]
  13. TEMAZEPAM [Concomitant]
  14. WARFARIN SODIUM [Concomitant]

REACTIONS (6)
  - ACTIVITIES OF DAILY LIVING IMPAIRED [None]
  - DECREASED APPETITE [None]
  - DYSPNOEA [None]
  - LIVER DISORDER [None]
  - TRANSAMINASES INCREASED [None]
  - TREATMENT NONCOMPLIANCE [None]
